FAERS Safety Report 25459938 (Version 1)
Quarter: 2025Q2

REPORT INFORMATION
  Report Type: Spontaneous
  Country: CA (occurrence: CA)
  Receive Date: 20250620
  Receipt Date: 20250620
  Transmission Date: 20250716
  Serious: Yes (Hospitalization)
  Sender: CHEPLAPHARM
  Company Number: CA-CHEPLA-2025007388

PATIENT
  Age: 85 Year
  Sex: Female
  Weight: 80 kg

DRUGS (20)
  1. OLANZAPINE [Suspect]
     Active Substance: OLANZAPINE
     Dosage: DAILY DOSE: 2.5 MILLIGRAM
     Route: 048
  2. OLANZAPINE [Suspect]
     Active Substance: OLANZAPINE
     Dosage: DAILY DOSE: 5 MILLIGRAM
     Route: 048
  3. RISPERIDONE [Suspect]
     Active Substance: RISPERIDONE
     Dosage: DAILY DOSE: 0.25 MILLIGRAM
     Route: 048
  4. RISPERIDONE [Suspect]
     Active Substance: RISPERIDONE
     Dosage: DAILY DOSE: 0.5 MILLIGRAM
     Route: 048
  5. ACETAMINOPHEN [Concomitant]
     Active Substance: ACETAMINOPHEN
  6. BETAMETHASONE DIPROPIONATE [Concomitant]
     Active Substance: BETAMETHASONE DIPROPIONATE
  7. BISOPROLOL [Concomitant]
     Active Substance: BISOPROLOL
  8. CALCIUM CARBONATE [Concomitant]
     Active Substance: CALCIUM CARBONATE
  9. CLOTRIMAZOLE [Concomitant]
     Active Substance: CLOTRIMAZOLE
  10. DONEPEZIL [Concomitant]
     Active Substance: DONEPEZIL
  11. GLICLAZIDE [Concomitant]
     Active Substance: GLICLAZIDE
  12. HYDROCHLOROTHIAZIDE [Concomitant]
     Active Substance: HYDROCHLOROTHIAZIDE
  13. INVOKANA [Concomitant]
     Active Substance: CANAGLIFLOZIN
  14. LOPERAMIDE [Concomitant]
     Active Substance: LOPERAMIDE
  15. MELATONIN [Concomitant]
     Active Substance: MELATONIN
  16. MIRTAZAPINE [Concomitant]
     Active Substance: MIRTAZAPINE
  17. ROSUVASTATIN [Concomitant]
     Active Substance: ROSUVASTATIN
  18. VALSARTAN [Concomitant]
     Active Substance: VALSARTAN
  19. VITAMIN B12 [Concomitant]
     Active Substance: CYANOCOBALAMIN
  20. VITAMIN D [Concomitant]
     Active Substance: VITAMIN D NOS

REACTIONS (3)
  - Freezing phenomenon [Recovered/Resolved]
  - Movement disorder [Recovered/Resolved]
  - Muscle rigidity [Recovered/Resolved]
